FAERS Safety Report 22842065 (Version 4)
Quarter: 2024Q1

REPORT INFORMATION
  Report Type: Spontaneous
  Country: DE (occurrence: DE)
  Receive Date: 20230821
  Receipt Date: 20240229
  Transmission Date: 20240410
  Serious: Yes (Death, Other)
  Sender: FDA-Public Use
  Company Number: DE-SA-2015SA049170

PATIENT
  Age: 38 Year
  Sex: Male

DRUGS (40)
  1. ACETAMINOPHEN [Suspect]
     Active Substance: ACETAMINOPHEN
     Indication: Product used for unknown indication
     Dosage: DOSE DESCRIPTION : UNK UNK,UNK
     Route: 065
  2. ACETAMINOPHEN [Suspect]
     Active Substance: ACETAMINOPHEN
     Dosage: DOSE DESCRIPTION : UNK UNK,UNK
     Route: 065
  3. ASPERCREME LIDOCAINE NO-MESS PLUS LAVENDER [Suspect]
     Active Substance: LIDOCAINE HYDROCHLORIDE
     Indication: Product used for unknown indication
     Dosage: DOSE DESCRIPTION : UNK UNK,UNK
     Route: 065
  4. ASPERCREME LIDOCAINE NO-MESS PLUS LAVENDER [Suspect]
     Active Substance: LIDOCAINE HYDROCHLORIDE
     Dosage: DOSE DESCRIPTION : UNK UNK,UNK
     Route: 065
  5. NICODERM CQ [Suspect]
     Active Substance: NICOTINE
     Indication: Product used for unknown indication
     Route: 065
  6. NICODERM CQ [Suspect]
     Active Substance: NICOTINE
  7. LEVAMISOLE [Suspect]
     Active Substance: LEVAMISOLE
     Indication: Product used for unknown indication
     Dosage: DOSE DESCRIPTION : UNK UNK,UNK
     Route: 065
  8. LEVAMISOLE [Suspect]
     Active Substance: LEVAMISOLE
     Dosage: DOSE DESCRIPTION : UNK UNK,UNK
     Route: 065
  9. HYDROXYZINE [Suspect]
     Active Substance: HYDROXYZINE HYDROCHLORIDE
     Indication: Product used for unknown indication
     Dosage: DOSE DESCRIPTION : UNK UNK,UNK
     Route: 065
  10. HYDROXYZINE [Suspect]
     Active Substance: HYDROXYZINE HYDROCHLORIDE
     Dosage: DOSE DESCRIPTION : UNK UNK,UNK
     Route: 065
  11. DILTIAZEM HYDROCHLORIDE [Suspect]
     Active Substance: DILTIAZEM HYDROCHLORIDE
     Indication: Product used for unknown indication
     Dosage: DOSE DESCRIPTION : UNK UNK,UNK
     Route: 065
  12. DILTIAZEM HYDROCHLORIDE [Suspect]
     Active Substance: DILTIAZEM HYDROCHLORIDE
     Dosage: DOSE DESCRIPTION : UNK UNK,UNK
     Route: 065
  13. DIAZEPAM [Suspect]
     Active Substance: DIAZEPAM
     Indication: Product used for unknown indication
     Dosage: DOSE DESCRIPTION : UNK
     Route: 065
  14. DIAZEPAM [Suspect]
     Active Substance: DIAZEPAM
     Dosage: DOSE DESCRIPTION : UNK
     Route: 065
  15. THEOPHYLLINE [Suspect]
     Active Substance: THEOPHYLLINE
     Indication: Product used for unknown indication
     Dosage: DOSE DESCRIPTION : UNK
     Route: 065
  16. THEOPHYLLINE [Suspect]
     Active Substance: THEOPHYLLINE
     Dosage: DOSE DESCRIPTION : UNK
     Route: 065
  17. COCAINE [Suspect]
     Active Substance: COCAINE
     Indication: Product used for unknown indication
     Dosage: DOSE DESCRIPTION : UNK UNK,UNK
     Route: 065
  18. COCAINE [Suspect]
     Active Substance: COCAINE
     Dosage: DOSE DESCRIPTION : UNK UNK,UNK
     Route: 065
  19. PHENACETIN [Suspect]
     Active Substance: PHENACETIN
     Indication: Product used for unknown indication
     Dosage: DOSE DESCRIPTION : UNK UNK,UNK
     Route: 065
  20. PHENACETIN [Suspect]
     Active Substance: PHENACETIN
     Dosage: DOSE DESCRIPTION : UNK UNK,UNK
     Route: 065
  21. CAFFEINE [Suspect]
     Active Substance: CAFFEINE
     Indication: Product used for unknown indication
     Dosage: DOSE DESCRIPTION : UNK UNK,UNK
     Route: 065
  22. CAFFEINE [Suspect]
     Active Substance: CAFFEINE
     Dosage: DOSE DESCRIPTION : UNK UNK,UNK
     Route: 065
  23. PAPAVERINE [Suspect]
     Active Substance: PAPAVERINE
     Indication: Product used for unknown indication
     Dosage: DOSE DESCRIPTION : UNK
     Route: 065
  24. PAPAVERINE [Suspect]
     Active Substance: PAPAVERINE
     Dosage: DOSE DESCRIPTION : UNK
     Route: 065
  25. NOSCAPINE [Suspect]
     Active Substance: NOSCAPINE
     Indication: Product used for unknown indication
     Dosage: DOSE DESCRIPTION : UNK
     Route: 065
  26. NOSCAPINE [Suspect]
     Active Substance: NOSCAPINE
     Dosage: DOSE DESCRIPTION : UNK
     Route: 065
  27. THEOBROMINE [Suspect]
     Active Substance: THEOBROMINE
     Indication: Product used for unknown indication
     Dosage: DOSE DESCRIPTION : UNK
     Route: 065
  28. THEOBROMINE [Suspect]
     Active Substance: THEOBROMINE
     Dosage: DOSE DESCRIPTION : UNK
     Route: 065
  29. CODEINE [Suspect]
     Active Substance: CODEINE
     Indication: Product used for unknown indication
     Dosage: DOSE DESCRIPTION : UNK
     Route: 065
  30. CODEINE [Suspect]
     Active Substance: CODEINE
     Dosage: DOSE DESCRIPTION : UNK
     Route: 065
  31. HEROIN [Suspect]
     Active Substance: DIAMORPHINE
     Indication: Product used for unknown indication
     Dosage: DOSE DESCRIPTION : UNK
     Route: 065
  32. HEROIN [Suspect]
     Active Substance: DIAMORPHINE
     Dosage: DOSE DESCRIPTION : UNK
     Route: 065
  33. NORDAZEPAM [Suspect]
     Active Substance: NORDAZEPAM
     Indication: Product used for unknown indication
     Dosage: DOSE DESCRIPTION : UNK
     Route: 065
  34. NORDAZEPAM [Suspect]
     Active Substance: NORDAZEPAM
     Dosage: DOSE DESCRIPTION : UNK
     Route: 065
  35. MORPHINE [Suspect]
     Active Substance: MORPHINE
     Indication: Product used for unknown indication
     Route: 065
  36. MORPHINE [Suspect]
     Active Substance: MORPHINE
     Route: 065
  37. ALCOHOL [Suspect]
     Active Substance: ALCOHOL
     Indication: Product used for unknown indication
     Dosage: DOSE DESCRIPTION : UNK
     Route: 065
  38. ALCOHOL [Suspect]
     Active Substance: ALCOHOL
     Dosage: DOSE DESCRIPTION : UNK
     Route: 065
  39. DOXYLAMINE [Suspect]
     Active Substance: DOXYLAMINE
     Indication: Product used for unknown indication
     Route: 065
  40. DOXYLAMINE [Suspect]
     Active Substance: DOXYLAMINE
     Route: 065

REACTIONS (5)
  - Accidental death [Fatal]
  - Toxicity to various agents [Fatal]
  - Drug interaction [Fatal]
  - Adulterated product [Fatal]
  - Drug abuse [Fatal]
